FAERS Safety Report 7681436-2 (Version None)
Quarter: 2011Q3

REPORT INFORMATION
  Report Type: 
  Country: None (occurrence: None)
  Receive Date: 20110812
  Receipt Date: 20110811
  Transmission Date: 20111222
  Serious: Yes (Hospitalization)
  Sender: FDA-Public Use
  Company Number: DE-ABBOTT-11P-062-0845693-00

PATIENT
  Age: 23 Year
  Sex: Male
  Weight: 67 kg

DRUGS (3)
  1. HUMIRA [Suspect]
  2. HUMIRA [Suspect]
     Indication: CROHN'S DISEASE
     Dosage: IN WEEK 0
     Route: 058
     Dates: start: 20100512
  3. HUMIRA [Suspect]
     Dosage: IN WEEK 2

REACTIONS (2)
  - LIPOMA [None]
  - INGUINAL HERNIA [None]
